FAERS Safety Report 9396381 (Version 1)
Quarter: 2013Q3

REPORT INFORMATION
  Report Type: Spontaneous
  Country: US (occurrence: None)
  Receive Date: 20130708
  Receipt Date: 20130708
  Transmission Date: 20140515
  Serious: Yes (Hospitalization, Other)
  Sender: FDA-Public Use
  Company Number: AUR-APL-2013-05746

PATIENT
  Age: 82 Year
  Sex: Male

DRUGS (2)
  1. LISINOPRIL [Suspect]
     Indication: BLOOD PRESSURE INCREASED
  2. INLYTA [Suspect]
     Indication: PRODUCT USED FOR UNKNOWN INDICATION
     Dosage: 1 DOSAGE FORMS, 2 IN 1 D
     Route: 048
     Dates: start: 201301

REACTIONS (8)
  - Hypertension [None]
  - Hypotension [None]
  - Dizziness [None]
  - Shock [None]
  - Fall [None]
  - Rib fracture [None]
  - Dyspnoea [None]
  - Dehydration [None]
